FAERS Safety Report 7313933-3 (Version None)
Quarter: 2011Q1

REPORT INFORMATION
  Report Type: 
  Country: None (occurrence: None)
  Receive Date: 20110225
  Receipt Date: 20110214
  Transmission Date: 20110831
  Serious: Yes (Hospitalization)
  Sender: FDA-Public Use
  Company Number: US-NAPPMUNDI-DEU-2011-0007011

PATIENT
  Age: 25 Year
  Sex: Male
  Weight: 68 kg

DRUGS (6)
  1. THIOPENTAL SODIUM [Suspect]
     Indication: ANAESTHESIA
     Dosage: 500 MG, SINGLE
  2. VECURONIUM BROMIDE [Suspect]
     Indication: ENDOTRACHEAL INTUBATION
     Dosage: 8 MG, SINGLE
  3. HYDROMORPHONE HCL [Suspect]
     Indication: POSTOPERATIVE ANALGESIA
     Dosage: 0.5 MG, UNK
  4. MIDAZOLAM HCL [Suspect]
     Indication: PREMEDICATION
     Dosage: 2 MG, SINGLE
  5. FENTANYL [Suspect]
     Indication: ANAESTHESIA
     Dosage: 250 MG, SINGLE
  6. RINGER                             /00047801/ [Suspect]
     Indication: FLUID REPLACEMENT
     Dosage: 500 ML, SINGLE

REACTIONS (2)
  - ACUTE PULMONARY OEDEMA [None]
  - LARYNGOSPASM [None]
